FAERS Safety Report 10974772 (Version 2)
Quarter: 2015Q2

REPORT INFORMATION
  Report Type: Report from Study
  Country: CA (occurrence: CA)
  Receive Date: 20150401
  Receipt Date: 20150409
  Transmission Date: 20150821
  Serious: Yes (Other)
  Sender: FDA-Public Use
  Company Number: PHHY2015CA022627

PATIENT
  Age: 30 Year
  Sex: Female

DRUGS (2)
  1. GILENYA [Suspect]
     Active Substance: FINGOLIMOD HYDROCHLORIDE
     Indication: RELAPSING-REMITTING MULTIPLE SCLEROSIS
     Dosage: 0.5 MG, UNK
     Route: 048
     Dates: start: 20141112
  2. GILENYA [Suspect]
     Active Substance: FINGOLIMOD HYDROCHLORIDE
     Dosage: 0.5 MG QOD (EVERY 2 DAYS)
     Route: 048
     Dates: start: 20150219, end: 20150223

REACTIONS (10)
  - Lymphocyte count decreased [Unknown]
  - Sensory loss [Unknown]
  - Paraesthesia [Not Recovered/Not Resolved]
  - Central nervous system lesion [Unknown]
  - Fatigue [Not Recovered/Not Resolved]
  - Prescribed underdose [Unknown]
  - Multiple sclerosis relapse [Recovering/Resolving]
  - Hypoaesthesia [Not Recovered/Not Resolved]
  - Immune reconstitution inflammatory syndrome [Unknown]
  - Off label use [Unknown]

NARRATIVE: CASE EVENT DATE: 20150204
